FAERS Safety Report 4804588-8 (Version None)
Quarter: 2005Q4

REPORT INFORMATION
  Report Type: 
  Country: None (occurrence: None)
  Receive Date: 20051017
  Receipt Date: 20051004
  Transmission Date: 20060501
  Serious: Yes (Other)
  Sender: FDA-Public Use
  Company Number: 2005139787

PATIENT
  Age: 59 Year
  Sex: Male

DRUGS (1)
  1. VIAGRA [Suspect]
     Indication: ERECTILE DYSFUNCTION
     Dosage: 50 MG (50 MG, 1 IN 1 WK), ORAL
     Route: 048

REACTIONS (3)
  - OPTIC ISCHAEMIC NEUROPATHY [None]
  - POST PROCEDURAL COMPLICATION [None]
  - VISUAL ACUITY REDUCED TRANSIENTLY [None]
